FAERS Safety Report 8900401 (Version 1)
Quarter: 2012Q4

REPORT INFORMATION
  Report Type: 
  Country: US (occurrence: US)
  Receive Date: 20121108
  Receipt Date: 20121108
  Transmission Date: 20130627
  Serious: No
  Sender: FDA-Public Use
  Company Number: US-AMGEN-USASP2012037796

PATIENT
  Sex: Female
  Weight: 75.74 kg

DRUGS (15)
  1. ENBREL [Suspect]
     Indication: PRODUCT USED FOR UNKNOWN INDICATION
     Dosage: 50 mg, qwk
     Route: 058
  2. BONIVA [Concomitant]
     Dosage: 2.5 mg, UNK
  3. CELEBREX [Concomitant]
     Dosage: 100 mg, UNK
  4. RAMIPRIL [Concomitant]
     Dosage: 5 mg, UNK
  5. PREDNISON [Concomitant]
     Dosage: 1 mg, UNK
  6. LORATADINE [Concomitant]
     Dosage: 10 mg, UNK
  7. LIPITOR [Concomitant]
     Dosage: 10 mg, UNK
  8. MIACALCIN [Concomitant]
     Dosage: SPR 200/ACT
  9. GABAPENTIN [Concomitant]
     Dosage: 100 mg, UNK
  10. HYDROCODEINE [Concomitant]
     Dosage: 7.5-200
  11. ADVAIR [Concomitant]
     Dosage: DISKU AER 100/50
  12. TOPROL XL [Concomitant]
     Dosage: 100 mg, UNK
  13. NEXIUM                             /01479302/ [Concomitant]
     Dosage: 20 mg, UNK
  14. SKELAXINE [Concomitant]
     Dosage: 800 mg, UNK
  15. ZANAFLEX [Concomitant]
     Dosage: 2 mg, UNK

REACTIONS (1)
  - Body dysmorphic disorder [Unknown]
